FAERS Safety Report 7765176-7 (Version None)
Quarter: 2011Q3

REPORT INFORMATION
  Report Type: 
  Country: None (occurrence: None)
  Receive Date: 20110901
  Receipt Date: 20101103
  Transmission Date: 20111222
  Serious: Yes (Hospitalization, Other)
  Sender: FDA-Public Use
  Company Number: 2010VX001902

PATIENT
  Age: 20 Year
  Sex: Female
  Weight: 37.6486 kg

DRUGS (3)
  1. DIASTAT [Suspect]
  2. DIASTAT [Suspect]
     Indication: CONVULSION
     Dosage: 15 MG;X1;RTL, 15 MG;X1;RTL
     Route: 054
     Dates: start: 20100729, end: 20100729
  3. DIASTAT [Suspect]
     Indication: CONVULSION
     Dosage: 15 MG;X1;RTL, 15 MG;X1;RTL
     Route: 054
     Dates: start: 20101030, end: 20101030

REACTIONS (3)
  - DRUG INEFFECTIVE [None]
  - PRODUCT QUALITY ISSUE [None]
  - DEVICE MALFUNCTION [None]
